FAERS Safety Report 10725549 (Version 8)
Quarter: 2015Q4

REPORT INFORMATION
  Report Type: Report from Study
  Country: BR (occurrence: BR)
  Receive Date: 20150121
  Receipt Date: 20151119
  Transmission Date: 20160304
  Serious: Yes (Hospitalization, Other)
  Sender: FDA-Public Use
  Company Number: BR-ROCHE-1465799

PATIENT
  Age: 70 Year
  Sex: Female
  Weight: 70 kg

DRUGS (17)
  1. ACTEMRA [Suspect]
     Active Substance: TOCILIZUMAB
     Dosage: LAST DOSE RECEIVED
     Route: 042
     Dates: start: 201410
  2. DIOVAN [Concomitant]
     Active Substance: VALSARTAN
  3. AAS [Concomitant]
     Active Substance: ASPIRIN
  4. DAONIL [Concomitant]
     Active Substance: GLYBURIDE
  5. ACTEMRA [Suspect]
     Active Substance: TOCILIZUMAB
     Route: 042
     Dates: start: 20140814
  6. ADALIMUMAB [Concomitant]
     Active Substance: ADALIMUMAB
  7. ACTEMRA [Suspect]
     Active Substance: TOCILIZUMAB
     Route: 042
     Dates: start: 20140922
  8. OMEPRAZOLE. [Concomitant]
     Active Substance: OMEPRAZOLE
  9. METFORMIN [Concomitant]
     Active Substance: METFORMIN HYDROCHLORIDE
  10. DEFLAZACORT [Concomitant]
     Active Substance: DEFLAZACORT
  11. PREDNISONE. [Concomitant]
     Active Substance: PREDNISONE
  12. FLUOXETIN [Concomitant]
     Active Substance: FLUOXETINE HYDROCHLORIDE
  13. METICORTEN [Concomitant]
     Active Substance: PREDNISONE
  14. ACTEMRA [Suspect]
     Active Substance: TOCILIZUMAB
     Indication: RHEUMATOID ARTHRITIS
     Route: 042
     Dates: start: 20140716
  15. METHOTREXATE [Concomitant]
     Active Substance: METHOTREXATE
  16. ABATACEPT [Concomitant]
     Active Substance: ABATACEPT
  17. SIMVASTATIN. [Concomitant]
     Active Substance: SIMVASTATIN

REACTIONS (13)
  - Post procedural fistula [Unknown]
  - Intestinal polyp [Unknown]
  - Eating disorder [Not Recovered/Not Resolved]
  - Eating disorder [Unknown]
  - Rheumatoid arthritis [Unknown]
  - Postoperative wound infection [Recovered/Resolved]
  - Post procedural inflammation [Unknown]
  - Medical device complication [Unknown]
  - Gingival disorder [Unknown]
  - Jaw fracture [Unknown]
  - Urinary tract infection [Recovered/Resolved]
  - Iron deficiency anaemia [Unknown]
  - Anaemia [Unknown]

NARRATIVE: CASE EVENT DATE: 201408
